FAERS Safety Report 16194873 (Version 1)
Quarter: 2019Q2

REPORT INFORMATION
  Report Type: Spontaneous
  Country: US (occurrence: US)
  Receive Date: 20190415
  Receipt Date: 20190415
  Transmission Date: 20190711
  Serious: Yes (Hospitalization)
  Sender: FDA-Public Use
  Company Number: US-JNJFOC-20190404882

PATIENT
  Age: 49 Year
  Sex: Female
  Weight: 80.7 kg

DRUGS (4)
  1. TYVASO [Suspect]
     Active Substance: TREPROSTINIL
     Indication: PULMONARY ARTERIAL HYPERTENSION
     Dosage: 18-54 MICROGRAMS (3-9 BREATHS)
     Route: 055
     Dates: start: 20170216
  2. OPSUMIT [Concomitant]
     Active Substance: MACITENTAN
     Route: 065
  3. BOSENTAN. [Concomitant]
     Active Substance: BOSENTAN
     Route: 065
  4. XARELTO [Suspect]
     Active Substance: RIVAROXABAN
     Indication: PRODUCT USED FOR UNKNOWN INDICATION
     Route: 048

REACTIONS (1)
  - Haemorrhage [Unknown]

NARRATIVE: CASE EVENT DATE: 20190219
